FAERS Safety Report 4462287-9 (Version None)
Quarter: 2004Q3

REPORT INFORMATION
  Report Type: 
  Country: None (occurrence: None)
  Receive Date: 20040924
  Receipt Date: 20040914
  Transmission Date: 20050211
  Serious: Yes (Hospitalization, Other)
  Sender: FDA-Public Use
  Company Number: 2003034280

PATIENT
  Age: 39 Year
  Sex: Male
  Weight: 88.4514 kg

DRUGS (4)
  1. NEURONTIN [Suspect]
     Indication: ARTHRALGIA
     Dates: start: 20000801, end: 20000801
  2. DIAZEPAM [Concomitant]
  3. OXYCOCET (PARACETAMOL, OXYCODONE HYDROCHLORIDE) [Concomitant]
  4. IBUPROFEN [Concomitant]

REACTIONS (1)
  - CONVULSION [None]
